FAERS Safety Report 21006153 (Version 1)
Quarter: 2022Q2

REPORT INFORMATION
  Report Type: Spontaneous
  Country: US (occurrence: US)
  Receive Date: 20220624
  Receipt Date: 20220624
  Transmission Date: 20220721
  Serious: Yes (Other)
  Sender: FDA-Public Use
  Company Number: US-FreseniusKabi-FK202209030

PATIENT
  Age: 30 Year
  Sex: Male

DRUGS (16)
  1. DOXORUBICIN [Suspect]
     Active Substance: DOXORUBICIN
     Indication: Adrenocortical carcinoma
     Dosage: CHEMOTHERAPY
  2. DOXORUBICIN [Suspect]
     Active Substance: DOXORUBICIN
     Dosage: SECOND CYCLE OF CHEMOTHERAPY WAS GIVEN
  3. ETOPOSIDE [Suspect]
     Active Substance: ETOPOSIDE
     Indication: Adrenocortical carcinoma
     Dosage: CHEMOTHERAPY
  4. ETOPOSIDE [Suspect]
     Active Substance: ETOPOSIDE
     Dosage: SECOND CYCLE OF CHEMOTHERAPY WAS GIVEN
  5. CISPLATIN [Suspect]
     Active Substance: CISPLATIN
     Indication: Adrenocortical carcinoma
     Dosage: CHEMOTHERAPY
  6. CISPLATIN [Suspect]
     Active Substance: CISPLATIN
     Dosage: SECOND CYCLE OF CHEMOTHERAPY WAS GIVEN
  7. HYDROCORTISONE [Concomitant]
     Active Substance: HYDROCORTISONE
     Indication: Hypoglycaemia
  8. MITOTANE [Concomitant]
     Active Substance: MITOTANE
     Indication: Adrenocortical carcinoma
  9. MITOTANE [Concomitant]
     Active Substance: MITOTANE
     Dosage: THREE TIMES DAILY
  10. OCTREOTIDE [Concomitant]
     Active Substance: OCTREOTIDE
     Indication: Hypoglycaemia
  11. DEXTROSE [Concomitant]
     Active Substance: DEXTROSE
     Indication: Hypoglycaemia
     Route: 042
  12. DEXTROSE [Concomitant]
     Active Substance: DEXTROSE
     Route: 048
  13. ALDACTONE [Concomitant]
     Active Substance: SPIRONOLACTONE
     Indication: Hypertension
  14. FLUDROCORTISONE [Concomitant]
     Active Substance: FLUDROCORTISONE
     Indication: Blood pressure decreased
  15. METYRAPONE [Concomitant]
     Active Substance: METYRAPONE
     Indication: Adrenocortical carcinoma
     Dosage: 1000
  16. METYRAPONE [Concomitant]
     Active Substance: METYRAPONE
     Dosage: THREE TIMES DAILY

REACTIONS (6)
  - Neutropenia [Unknown]
  - Anaemia [Unknown]
  - Respiratory failure [Unknown]
  - Legionella test positive [Unknown]
  - Enterobacter test positive [Unknown]
  - Pneumonia [Unknown]
